FAERS Safety Report 9473103 (Version 1)
Quarter: 2013Q3

REPORT INFORMATION
  Report Type: Spontaneous
  Country: US (occurrence: US)
  Receive Date: 20130823
  Receipt Date: 20130823
  Transmission Date: 20140515
  Serious: Yes (Other)
  Sender: FDA-Public Use
  Company Number: US-BRISTOL-MYERS SQUIBB COMPANY-17440249

PATIENT
  Age: 61 Year
  Sex: Female

DRUGS (5)
  1. SPRYCEL [Suspect]
     Dosage: RESTARTED WITH 80 MG
  2. LIPITOR [Concomitant]
  3. SYNTHROID [Concomitant]
  4. CALTRATE [Concomitant]
  5. VITAMIN D [Concomitant]

REACTIONS (1)
  - Pericardial effusion [Unknown]
